FAERS Safety Report 25392317 (Version 6)
Quarter: 2025Q4

REPORT INFORMATION
  Report Type: Spontaneous
  Country: US (occurrence: US)
  Receive Date: 20250603
  Receipt Date: 20251009
  Transmission Date: 20260117
  Serious: No
  Sender: SANOFI AVENTIS
  Company Number: US-SA-2025SA156052

PATIENT
  Age: 1 Month
  Sex: Male

DRUGS (1)
  1. LUMIZYME [Suspect]
     Active Substance: ALGLUCOSIDASE ALFA
     Dosage: UNK
     Route: 065

REACTIONS (2)
  - Tryptase increased [Recovered/Resolved]
  - Drug specific antibody present [Recovered/Resolved]

NARRATIVE: CASE EVENT DATE: 20250514
